FAERS Safety Report 24982742 (Version 1)
Quarter: 2025Q1

REPORT INFORMATION
  Report Type: Report from Study
  Country: TR (occurrence: TR)
  Receive Date: 20250218
  Receipt Date: 20250218
  Transmission Date: 20250408
  Serious: Yes (Other)
  Sender: PFIZER
  Company Number: TR-PFIZER INC-PV202500019119

PATIENT
  Age: 31 Year
  Sex: Female
  Weight: 70 kg

DRUGS (2)
  1. RIMEGEPANT [Suspect]
     Active Substance: RIMEGEPANT
     Indication: Migraine
     Dosage: 75 MG, ALTERNATE DAY
     Dates: start: 20241018, end: 20250204
  2. AMITRIPTYLINE HYDROCHLORIDE [Concomitant]
     Active Substance: AMITRIPTYLINE HYDROCHLORIDE
     Indication: Migraine
     Dosage: 10 MG, 1X/DAY
     Route: 048
     Dates: start: 20240501, end: 20250204

REACTIONS (1)
  - Hepatitis toxic [Recovered/Resolved]

NARRATIVE: CASE EVENT DATE: 20250101
